FAERS Safety Report 8859181 (Version 1)
Quarter: 2012Q4

REPORT INFORMATION
  Report Type: 
  Country: US (occurrence: US)
  Receive Date: 20121024
  Receipt Date: 20121024
  Transmission Date: 20130627
  Serious: No
  Sender: FDA-Public Use
  Company Number: US-PFIZER INC-2012261995

PATIENT
  Age: 53 Year
  Sex: Female
  Weight: 92.52 kg

DRUGS (3)
  1. CALAN [Suspect]
     Indication: HYPERTENSION
     Dosage: 120 mg, 3x/day
     Dates: end: 20121016
  2. GLYBURIDE [Concomitant]
     Indication: DIABETES MELLITUS
     Dosage: 10 mg, 2x/day
  3. SIMVASTATIN [Concomitant]
     Indication: BLOOD CHOLESTEROL INCREASED
     Dosage: 40 mg, daily

REACTIONS (1)
  - Drug ineffective [Unknown]
